FAERS Safety Report 12247400 (Version 2)
Quarter: 2016Q2

REPORT INFORMATION
  Report Type: Report from Study
  Country: US (occurrence: US)
  Receive Date: 20160407
  Receipt Date: 20160419
  Transmission Date: 20160815
  Serious: Yes (Hospitalization, Other)
  Sender: FDA-Public Use
  Company Number: US-GILEAD-2016-0201111

PATIENT
  Age: 27 Year
  Sex: Female

DRUGS (12)
  1. AZTREONAM LYSINE [Suspect]
     Active Substance: AZTREONAM LYSINE
     Indication: CYSTIC FIBROSIS
     Dosage: 75 MG, UNK
     Route: 055
     Dates: start: 20111009
  2. MEROPENEM. [Concomitant]
     Active Substance: MEROPENEM
  3. RANITIDINE. [Concomitant]
     Active Substance: RANITIDINE
  4. AZTREONAM LYSINE [Suspect]
     Active Substance: AZTREONAM LYSINE
     Indication: PSEUDOMONAS INFECTION
  5. DORNASE ALFA [Concomitant]
     Active Substance: DORNASE ALFA
  6. SALMETEROL [Concomitant]
     Active Substance: SALMETEROL
  7. LEVONORGESTREL. [Concomitant]
     Active Substance: LEVONORGESTREL
  8. MULTIVITAMIN                       /00097801/ [Concomitant]
     Active Substance: VITAMINS
  9. SENNA                              /00142201/ [Concomitant]
     Active Substance: SENNA LEAF
  10. FLUTICASONE [Concomitant]
     Active Substance: FLUTICASONE\FLUTICASONE PROPIONATE
  11. TOBRAMYCIN. [Concomitant]
     Active Substance: TOBRAMYCIN
  12. PANCRELIPASE. [Concomitant]
     Active Substance: PANCRELIPASE

REACTIONS (2)
  - Lung disorder [Unknown]
  - Infective pulmonary exacerbation of cystic fibrosis [Unknown]
